FAERS Safety Report 14612100 (Version 1)
Quarter: 2018Q1

REPORT INFORMATION
  Report Type: Spontaneous
  Country: CO (occurrence: CO)
  Receive Date: 20180308
  Receipt Date: 20180308
  Transmission Date: 20180509
  Serious: Yes (Hospitalization)
  Sender: FDA-Public Use
  Company Number: PHHY2015CO031687

PATIENT
  Age: 22 Year
  Sex: Female

DRUGS (6)
  1. MEROPENEM. [Concomitant]
     Active Substance: MEROPENEM
     Indication: PSEUDOMONAS INFECTION
     Route: 065
  2. CEFEPIME [Concomitant]
     Active Substance: CEFEPIME HYDROCHLORIDE
     Indication: PSEUDOMONAS INFECTION
     Route: 065
  3. CIPROFLOXACIN. [Concomitant]
     Active Substance: CIPROFLOXACIN
     Indication: PSEUDOMONAS INFECTION
     Route: 065
  4. LEVETIRACETAM. [Concomitant]
     Active Substance: LEVETIRACETAM
     Indication: CONVULSION PROPHYLAXIS
     Dosage: 500 MG, Q12H
  5. VALPROIC ACID. [Suspect]
     Active Substance: VALPROIC ACID
     Indication: BIPOLAR I DISORDER
     Dosage: 750 MG, QD
     Route: 065
  6. LITHIUM. [Concomitant]
     Active Substance: LITHIUM
     Indication: BIPOLAR I DISORDER
     Dosage: 900 MG, QD
     Route: 065

REACTIONS (22)
  - Rash [Recovering/Resolving]
  - Dehydration [Recovering/Resolving]
  - Drug-induced liver injury [Recovering/Resolving]
  - Systemic inflammatory response syndrome [Recovering/Resolving]
  - Sensory disturbance [Recovering/Resolving]
  - Jaundice [Recovering/Resolving]
  - Acute hepatic failure [Recovering/Resolving]
  - Erythema [Recovering/Resolving]
  - Drug reaction with eosinophilia and systemic symptoms [Recovering/Resolving]
  - Discomfort [Recovering/Resolving]
  - Slow response to stimuli [Recovering/Resolving]
  - Hyperreflexia [Recovering/Resolving]
  - Pyrexia [Recovering/Resolving]
  - Prurigo [Recovering/Resolving]
  - Vomiting [Recovering/Resolving]
  - Oedema peripheral [Recovering/Resolving]
  - Rash generalised [Recovering/Resolving]
  - Nausea [Recovering/Resolving]
  - Malaise [Recovering/Resolving]
  - Mydriasis [Recovering/Resolving]
  - Lymphadenopathy [Recovering/Resolving]
  - Hepatic function abnormal [Recovering/Resolving]
